FAERS Safety Report 16513755 (Version 1)
Quarter: 2019Q3

REPORT INFORMATION
  Report Type: Report from Study
  Country: US (occurrence: US)
  Receive Date: 20190701
  Receipt Date: 20190701
  Transmission Date: 20191004
  Serious: No
  Sender: FDA-Public Use
  Company Number: PHEH2019US027583

PATIENT
  Age: 43 Year
  Sex: Female

DRUGS (1)
  1. COSENTYX [Suspect]
     Active Substance: SECUKINUMAB
     Indication: PSORIASIS
     Route: 058
     Dates: start: 201812

REACTIONS (7)
  - Abdominal discomfort [Unknown]
  - Weight decreased [Unknown]
  - Candida infection [Unknown]
  - Diarrhoea [Unknown]
  - Bronchitis [Unknown]
  - Dehydration [Unknown]
  - Urticaria [Unknown]
